FAERS Safety Report 8898830 (Version 4)
Quarter: 2013Q1

REPORT INFORMATION
  Report Type: Report from Study
  Country: JP (occurrence: JP)
  Receive Date: 20121109
  Receipt Date: 20130103
  Transmission Date: 20140127
  Serious: Yes (Hospitalization, Disabling, Other)
  Sender: FDA-Public Use
  Company Number: JP-BRISTOL-MYERS SQUIBB COMPANY-17096801

PATIENT
  Age: 67 Year
  Sex: Female
  Weight: 49 kg

DRUGS (28)
  1. BRIPLATIN [Suspect]
     Indication: GASTRIC CANCER
     Dosage: LAST DOSE ON 22OCT2012,84MG/D
     Route: 042
     Dates: start: 20121022
  2. TEGAFUR + GIMERACIL + POTASSIUM OXONATE [Suspect]
     Indication: GASTRIC CANCER
     Dosage: LAST DOSE ON 24OCT2012,120MG/D
     Route: 048
     Dates: start: 20121015
  3. ZETIA [Concomitant]
     Indication: HYPERLIPIDAEMIA
     Dosage: TAB
     Route: 048
  4. TAKEPRON [Concomitant]
     Indication: GASTRITIS
     Dosage: TAB
     Route: 048
  5. MOHRUS [Concomitant]
     Indication: TUMOUR PAIN
     Dosage: MOHRUS TAPE
  6. CALONAL [Concomitant]
     Indication: TUMOUR PAIN
     Dosage: TAB
     Route: 048
  7. DAI-KENCHU-TO [Concomitant]
     Indication: CONSTIPATION
     Dosage: DAI-KENCHU-TO TU-100?GRANULES
     Route: 048
  8. LECICARBON [Concomitant]
     Indication: CONSTIPATION
     Dosage: SUP
  9. TRAMAL [Concomitant]
     Indication: TUMOUR PAIN
     Dosage: CAP
     Route: 048
  10. NOVAMIN [Concomitant]
     Indication: PROPHYLAXIS
     Dosage: TAB
     Route: 048
  11. SENNOSIDE [Concomitant]
     Indication: CONSTIPATION
     Dosage: TAB
     Route: 048
  12. OXINORM [Concomitant]
     Indication: TUMOUR PAIN
     Dosage: OXINORM 25MG POWDER
     Route: 048
  13. LAXOBERON [Concomitant]
     Indication: CONSTIPATION
     Dosage: SOLUTION
     Route: 048
  14. NAUZELIN [Concomitant]
     Indication: NAUSEA
     Dosage: NAUZELIN OD TAB
     Route: 048
  15. EMEND [Concomitant]
     Indication: NAUSEA
     Dosage: CAP
     Route: 048
  16. ALLOID [Concomitant]
     Route: 048
  17. FENTANYL [Concomitant]
     Indication: TUMOUR PAIN
     Dosage: PATCH
  18. POLARAMINE [Concomitant]
     Indication: PAIN
     Dosage: SYRUP
     Route: 048
  19. ZOFRAN ZYDIS [Concomitant]
     Indication: NAUSEA
     Route: 048
  20. LOPEMIN [Concomitant]
     Indication: DIARRHOEA
     Dosage: CAP
     Route: 048
  21. NAUZELIN [Concomitant]
     Indication: NAUSEA
     Dosage: NAUZELIN OD TAB
     Route: 048
  22. DECADRON [Concomitant]
     Indication: NAUSEA
     Dosage: TAB
     Route: 048
  23. SOLULACT [Concomitant]
     Indication: NAUSEA
     Dosage: INJECTION?INFUSION
  24. SOLULACT [Concomitant]
     Indication: DECREASED APPETITE
     Dosage: INJECTION?INFUSION
  25. PRIMPERAN [Concomitant]
     Indication: NAUSEA
     Dosage: INJECTION?INFUSION
  26. DEXART [Concomitant]
     Indication: NAUSEA
     Dosage: INJECTION?INFUSION
  27. GRANISETRON [Concomitant]
     Indication: NAUSEA
     Dosage: INJECTION?INFUSION
  28. OMEPRAL [Concomitant]
     Indication: GASTRITIS
     Dosage: INJECTION?INFUSION

REACTIONS (6)
  - Nausea [Recovered/Resolved]
  - Decreased appetite [Recovered/Resolved]
  - Fatigue [Recovered/Resolved]
  - Mesenteric artery embolism [Recovered/Resolved]
  - Suture rupture [Recovered/Resolved]
  - Gastrointestinal necrosis [Recovering/Resolving]
